FAERS Safety Report 7465246-7 (Version None)
Quarter: 2011Q2

REPORT INFORMATION
  Report Type: 
  Country: None (occurrence: None)
  Receive Date: 20110509
  Receipt Date: 20110427
  Transmission Date: 20111010
  Serious: Yes (Other)
  Sender: FDA-Public Use
  Company Number: PHHY2011ES36207

PATIENT
  Age: 70 Year
  Sex: Female

DRUGS (1)
  1. AREDIA [Suspect]
     Indication: METASTASES TO BONE
     Dosage: 90 MG, UNK
     Route: 030
     Dates: start: 20020101

REACTIONS (1)
  - OSTEONECROSIS OF JAW [None]
